FAERS Safety Report 7940034-3 (Version None)
Quarter: 2011Q4

REPORT INFORMATION
  Report Type: 
  Country: None (occurrence: None)
  Receive Date: 20111125
  Receipt Date: 20111122
  Transmission Date: 20120403
  Serious: Yes (Death)
  Sender: FDA-Public Use
  Company Number: US-SANOFI-AVENTIS-2011SA077084

PATIENT
  Age: 38 Year
  Sex: Female

DRUGS (9)
  1. FLUOROURACIL [Suspect]
     Dosage: CONTINUOUS INFUSION
     Route: 042
  2. THERAPEUTIC RADIOPHARMACEUTICALS [Suspect]
     Dosage: 50 GY GIVEN IN 28 FRACTION
     Route: 065
  3. OXALIPLATIN [Suspect]
     Dosage: 2-HOUR DURATION
     Route: 042
  4. FLUOROURACIL [Suspect]
     Dosage: CONTINUOUS INFUSION
     Route: 042
  5. FLUOROURACIL [Suspect]
     Dosage: TWO CYCLES GIVEN, CONSOLIDATION THERAPY
     Route: 065
  6. CISPLATIN [Suspect]
     Dosage: TWO CYCLES GIVEN, CONSOLIDATION THERAPY
     Route: 065
  7. EPIRUBICIN [Suspect]
     Route: 042
  8. OXALIPLATIN [Suspect]
     Dosage: 2-HOUR DURATION
     Route: 042
  9. EPIRUBICIN [Suspect]
     Route: 042

REACTIONS (11)
  - CONFUSIONAL STATE [None]
  - PYREXIA [None]
  - NAUSEA [None]
  - NEUROLOGICAL DECOMPENSATION [None]
  - AIR EMBOLISM [None]
  - INTRACRANIAL PRESSURE INCREASED [None]
  - GRAND MAL CONVULSION [None]
  - GASTROINTESTINAL TOXICITY [None]
  - BRAIN OEDEMA [None]
  - VOMITING [None]
  - FISTULA [None]
